FAERS Safety Report 6024994-6 (Version None)
Quarter: 2008Q4

REPORT INFORMATION
  Report Type: 
  Country: None (occurrence: None)
  Receive Date: 20081231
  Receipt Date: 20081222
  Transmission Date: 20090506
  Serious: Yes (Other)
  Sender: FDA-Public Use
  Company Number: FR-AVENTIS-200814462FR

PATIENT
  Age: 1 Day
  Sex: Female
  Weight: 1.77 kg

DRUGS (6)
  1. LASIX [Suspect]
     Indication: CARDIOMYOPATHY
     Route: 064
     Dates: start: 20080301, end: 20080601
  2. LASIX [Suspect]
     Route: 064
     Dates: start: 20081023, end: 20081106
  3. BISOPROLOL G GAM [Concomitant]
     Indication: CARDIOMYOPATHY
     Route: 064
     Dates: start: 20080327, end: 20081106
  4. TAREG [Concomitant]
     Indication: CARDIOMYOPATHY
     Route: 064
     Dates: start: 20080327, end: 20080605
  5. ALDACTONE [Concomitant]
     Indication: CARDIOMYOPATHY
     Route: 064
     Dates: start: 20080327, end: 20080605
  6. GLUCOVANCE                         /01503701/ [Concomitant]
     Indication: TYPE 2 DIABETES MELLITUS
     Route: 064
     Dates: start: 20080301, end: 20080601

REACTIONS (6)
  - BLOOD CREATININE INCREASED [None]
  - CAESAREAN SECTION [None]
  - DRUG EXPOSURE DURING PREGNANCY [None]
  - HYPONATRAEMIA [None]
  - POLYURIA [None]
  - PREMATURE BABY [None]
